FAERS Safety Report 9020171 (Version 1)
Quarter: 2013Q1

REPORT INFORMATION
  Report Type: Spontaneous
  Country: US (occurrence: US)
  Receive Date: 20130119
  Receipt Date: 20130119
  Transmission Date: 20140127
  Serious: No
  Sender: FDA-Public Use
  Company Number: US-ALLERGAN-1210321US

PATIENT
  Sex: Female

DRUGS (3)
  1. BOTOX COSMETIC [Suspect]
     Indication: SKIN WRINKLING
     Dosage: UNK UNK, SINGLE
     Route: 030
  2. BOTOX COSMETIC [Suspect]
     Indication: SKIN WRINKLING
  3. JUVEDERM [Suspect]
     Dosage: UNK

REACTIONS (4)
  - Sensation of pressure [Unknown]
  - Nasal congestion [Unknown]
  - Ear discomfort [Unknown]
  - Dizziness [Unknown]
